FAERS Safety Report 10296982 (Version 1)
Quarter: 2014Q3

REPORT INFORMATION
  Report Type: Spontaneous
  Country: FR (occurrence: FR)
  Receive Date: 20140711
  Receipt Date: 20140711
  Transmission Date: 20150326
  Serious: Yes (Other)
  Sender: FDA-Public Use
  Company Number: PHHY2014FR085097

PATIENT
  Age: 33 Year
  Sex: Male

DRUGS (5)
  1. SULFARLEM [Concomitant]
     Active Substance: ANETHOLTRITHION
     Dosage: UKN
  2. THERALENE [Concomitant]
     Active Substance: TRIMEPRAZINE
     Dosage: UKN
  3. NOCTAMIDE [Concomitant]
     Active Substance: LORMETAZEPAM
     Dosage: UKN
  4. AKINETON [Concomitant]
     Active Substance: BIPERIDEN HYDROCHLORIDE
     Dosage: UKN
  5. LEPONEX [Suspect]
     Active Substance: CLOZAPINE
     Indication: SCHIZOPHRENIA
     Dosage: 350 MG, DAILY

REACTIONS (2)
  - Leukocytosis [Not Recovered/Not Resolved]
  - Neutrophil count increased [Unknown]

NARRATIVE: CASE EVENT DATE: 20140705
